FAERS Safety Report 21951015 (Version 4)
Quarter: 2023Q2

REPORT INFORMATION
  Report Type: Spontaneous
  Country: US (occurrence: US)
  Receive Date: 20230203
  Receipt Date: 20230620
  Transmission Date: 20230722
  Serious: Yes (Death, Hospitalization, Other)
  Sender: FDA-Public Use
  Company Number: US-PFIZER INC-PV202300019675

PATIENT
  Age: 83 Year
  Sex: Female
  Weight: 56.69 kg

DRUGS (63)
  1. DEPO-MEDROL [Suspect]
     Active Substance: METHYLPREDNISOLONE ACETATE
     Indication: Arthritis
     Dosage: UNK (2 INJECTION/AT RIGHT THROCHANTERIC BURSA AND RIGHT GLUTEAL MEDIUS BURSA)
     Dates: start: 20210614, end: 20210614
  2. DEPO-MEDROL [Suspect]
     Active Substance: METHYLPREDNISOLONE ACETATE
     Indication: Osteoarthritis
  3. DEPO-MEDROL [Suspect]
     Active Substance: METHYLPREDNISOLONE ACETATE
     Indication: Osteomyelitis
  4. DEPO-MEDROL [Suspect]
     Active Substance: METHYLPREDNISOLONE ACETATE
     Indication: Osteoporosis
  5. DEPO-MEDROL [Suspect]
     Active Substance: METHYLPREDNISOLONE ACETATE
     Indication: Parkinson^s disease
  6. DEPO-MEDROL [Suspect]
     Active Substance: METHYLPREDNISOLONE ACETATE
     Indication: Spinal osteoarthritis
  7. DEPO-MEDROL [Suspect]
     Active Substance: METHYLPREDNISOLONE ACETATE
     Indication: Greater trochanteric pain syndrome
  8. DEPO-MEDROL [Suspect]
     Active Substance: METHYLPREDNISOLONE ACETATE
     Indication: Lung disorder
  9. DEPO-MEDROL [Suspect]
     Active Substance: METHYLPREDNISOLONE ACETATE
     Indication: Chronic respiratory failure
  10. DEPO-MEDROL [Suspect]
     Active Substance: METHYLPREDNISOLONE ACETATE
     Indication: Sleep disorder
  11. DEPO-MEDROL [Suspect]
     Active Substance: METHYLPREDNISOLONE ACETATE
     Indication: Kyphoscoliosis
  12. DEPO-MEDROL [Suspect]
     Active Substance: METHYLPREDNISOLONE ACETATE
     Indication: Asthma
  13. METHIMAZOLE [Concomitant]
     Active Substance: METHIMAZOLE
     Dosage: 5 MG, 2X/DAY
     Route: 048
     Dates: start: 20210614
  14. AMANTADINE HYDROCHLORIDE [Concomitant]
     Active Substance: AMANTADINE HYDROCHLORIDE
     Dosage: 10 ML, 2X/DAY
     Route: 048
     Dates: start: 20210614
  15. AMANTADINE HYDROCHLORIDE [Concomitant]
     Active Substance: AMANTADINE HYDROCHLORIDE
     Dosage: UNK, 1X/DAY (2.5 CC/IN AM)
     Route: 048
  16. AMANTADINE HYDROCHLORIDE [Concomitant]
     Active Substance: AMANTADINE HYDROCHLORIDE
     Dosage: 2.5 ML, 1X/DAY (EVERY DAY/AT 7AM/VIA PEG)
     Route: 048
  17. AMANTADINE HYDROCHLORIDE [Concomitant]
     Active Substance: AMANTADINE HYDROCHLORIDE
     Dosage: 25 MG, DAILY (VIA PEG)
  18. PRAMIPEXOLE [Concomitant]
     Active Substance: PRAMIPEXOLE
     Dosage: 0.5 MG, 3X/DAY
     Route: 048
     Dates: start: 20210614
  19. PRAMIPEXOLE [Concomitant]
     Active Substance: PRAMIPEXOLE
     Dosage: UNK (TAKE 1 TABLET BY MOUTH EVERY DAY AT 7 AM AND 1/2 TABLET AT 3 PM)
     Route: 048
  20. PRAMIPEXOLE [Concomitant]
     Active Substance: PRAMIPEXOLE
     Dosage: 0.25 MG, DAILY (TAKE HALF TABLET VIA PEG)
  21. PRAMIPEXOLE [Concomitant]
     Active Substance: PRAMIPEXOLE
     Dosage: UNK (1.5 TABLET AT 7AM, 1.5 TABLET AT 4PM)
  22. PRAMIPEXOLE [Concomitant]
     Active Substance: PRAMIPEXOLE
     Dosage: 0.125 MG
  23. CARBIDOPA LEVODOPA [Concomitant]
     Active Substance: CARBIDOPA\LEVODOPA
     Dosage: 1 DF, 3X/DAY
     Route: 048
     Dates: start: 20210614
  24. CARBIDOPA LEVODOPA [Concomitant]
     Active Substance: CARBIDOPA\LEVODOPA
     Dosage: UNK (TAKE 1 TABLET BY MOUTH AT 7 AM, 1/2 AT 11 AM AND 3 PM. AND 1/4 AT 7 PM)
  25. CARBIDOPA LEVODOPA [Concomitant]
     Active Substance: CARBIDOPA\LEVODOPA
     Dosage: UNK UNK, DAILY
  26. CARBIDOPA LEVODOPA [Concomitant]
     Active Substance: CARBIDOPA\LEVODOPA
     Dosage: UNK, DAILY (TAKE 1/2 TABLET VIA PEG)
  27. CARBIDOPA LEVODOPA [Concomitant]
     Active Substance: CARBIDOPA\LEVODOPA
     Dosage: UNK (AT 7AM, 1.5 TABLET AT 11AM, 1.5 TABLET AT 4PM (QUARTER TABLETS))
  28. SODIUM BICARBONATE [Concomitant]
     Active Substance: SODIUM BICARBONATE
     Dosage: 1300 MG, DAILY (2 TABLET AT 9 AM)
     Dates: start: 20210614
  29. SODIUM BICARBONATE [Concomitant]
     Active Substance: SODIUM BICARBONATE
     Dosage: UNK
  30. VITAMIN D3 [Concomitant]
     Active Substance: CHOLECALCIFEROL
     Dosage: 10 UG, 1X/DAY (400 UNIT)
     Dates: start: 20210614
  31. VITAMIN D3 [Concomitant]
     Active Substance: CHOLECALCIFEROL
     Dosage: UNK
  32. VITAMIN D3 [Concomitant]
     Active Substance: CHOLECALCIFEROL
     Dosage: 25 UG, DAILY (25 MCG (1000 INTL UNITS) TAKE ONE TABLET VIA PEG)
  33. VITAMIN D3 [Concomitant]
     Active Substance: CHOLECALCIFEROL
     Dosage: 20 UG, 1X/DAY (TWO 400 IU TAB DAILY (800MCG/DAY)/DISSOLVE TABLETS BY SUPERIOR SOURCE)
  34. SUPLENA [Concomitant]
     Dosage: UNK (2-3 CARTONS DAILY CONTINUOUS PUMP 32 ML/HR DURING DAY, 20 ML/HR AT NIGHT)
     Route: 048
  35. METHIMAZOLE [Concomitant]
     Active Substance: METHIMAZOLE
     Dosage: 5 MG, 2X/DAY
     Route: 048
     Dates: start: 20210614
  36. METHIMAZOLE [Concomitant]
     Active Substance: METHIMAZOLE
     Dosage: 5 MG, DAILY (TAKE 1 TABLET DAILY, FIVE DAYS OF THE WEEK, SKIP WEDNESDAY AND SUNDAYS)
  37. VITAMIN B12 [Concomitant]
     Active Substance: CYANOCOBALAMIN
     Dosage: 500 UG
     Route: 048
  38. DIETARY SUPPLEMENT [Concomitant]
     Active Substance: DIETARY SUPPLEMENT
     Dosage: 500 MG, DAILY (1 BY MOUTH DAILY TT SATUREDAY)
     Route: 048
  39. DIETARY SUPPLEMENT [Concomitant]
     Active Substance: DIETARY SUPPLEMENT
     Dosage: 1000 MG (1 TEASPOON)
     Route: 048
  40. DIETARY SUPPLEMENT [Concomitant]
     Active Substance: DIETARY SUPPLEMENT
     Dosage: 1000 MG (1 TEASPOON TUESDAY, THURSDAY + SATUREDAY)
  41. XANAX [Concomitant]
     Active Substance: ALPRAZOLAM
     Dosage: UNK
  42. AMOXICILLIN [Concomitant]
     Active Substance: AMOXICILLIN
     Indication: Pneumonia
     Dosage: 500 MG, 2X/DAY (ONE CAPSULE (500 MG) VIA PEG Q12H X 7 DAYS)
  43. AMPICILLIN [Concomitant]
     Active Substance: AMPICILLIN
     Indication: Sepsis
     Dosage: UNK
  44. ASCORBIC ACID [Concomitant]
     Active Substance: ASCORBIC ACID
     Dosage: 250 MG
     Route: 048
  45. COBAMAMIDE [Concomitant]
     Active Substance: COBAMAMIDE
     Dosage: UNK
  46. FERROUS SULFATE [Concomitant]
     Active Substance: FERROUS SULFATE
     Dosage: 10 ML, DAILY
     Route: 048
  47. FOSFOMYCIN [Concomitant]
     Active Substance: FOSFOMYCIN
     Dosage: UNK
  48. KETOCONAZOLE [Concomitant]
     Active Substance: KETOCONAZOLE
     Dosage: UNK UNK, 2X/DAY
     Route: 061
  49. LACTOBACILLUS ACIDOPHILUS [Concomitant]
     Active Substance: LACTOBACILLUS ACIDOPHILUS
     Dosage: UNK, DAILY [10 BILLION CELL CAPSULE, PROBIOTIC TK 1]
  50. LACTOBACILLUS RHAMNOSUS [Concomitant]
     Active Substance: LACTOBACILLUS RHAMNOSUS
     Dosage: UNK, DAILY [1 PACKET DAILY]
  51. LACTOBACILLUS RHAMNOSUS [Concomitant]
     Active Substance: LACTOBACILLUS RHAMNOSUS
     Dosage: UNK, DAILY [10 BILLION CELL CAPSULE]
  52. MUPIROCIN [Concomitant]
     Active Substance: MUPIROCIN
     Indication: Infection
     Dosage: UNK
  53. NYSTATIN [Concomitant]
     Active Substance: NYSTATIN
     Dosage: UNK
  54. PANTOPRAZOLE [Concomitant]
     Active Substance: PANTOPRAZOLE
     Dosage: 20 MG, DAILY
     Route: 048
  55. TRAMADOL [Concomitant]
     Active Substance: TRAMADOL
     Dosage: 50 MG, AS NEEDED (TWO TIMES DAILY)
     Route: 048
  56. TRIAMCINOLONE [Concomitant]
     Active Substance: TRIAMCINOLONE
     Dosage: UNK, 2X/DAY (FOR 10 DAYS)
     Route: 061
  57. VITAMIN B1 [Concomitant]
     Active Substance: THIAMINE HYDROCHLORIDE
     Dosage: UNK
  58. VITAMIN B2 [Concomitant]
     Active Substance: RIBOFLAVIN
     Dosage: UNK
  59. VITAMIN B3 [Concomitant]
     Active Substance: NIACIN
     Dosage: UNK
  60. VITAMIN B5 [CALCIUM PANTOTHENATE] [Concomitant]
     Dosage: UNK
  61. VITAMIN B6 [Concomitant]
     Active Substance: PYRIDOXINE HYDROCHLORIDE
     Dosage: UNK
  62. METOPROLOL SUCCINATE [Concomitant]
     Active Substance: METOPROLOL SUCCINATE
     Dosage: 25 MG, DAILY
     Route: 048
     Dates: start: 20210829
  63. SINEMET [Concomitant]
     Active Substance: CARBIDOPA\LEVODOPA
     Dosage: UNK

REACTIONS (35)
  - Wound infection staphylococcal [Fatal]
  - Streptococcal sepsis [Fatal]
  - Sepsis [Fatal]
  - Arrhythmia [Unknown]
  - Swelling face [Unknown]
  - Swollen tongue [Unknown]
  - Faeces discoloured [Unknown]
  - Wound abscess [Unknown]
  - Pneumonia aspiration [Unknown]
  - Arteriosclerosis coronary artery [Unknown]
  - Cardiomegaly [Unknown]
  - Muscle contracture [Unknown]
  - Abdominal pain [Unknown]
  - Diarrhoea [Unknown]
  - Visual impairment [Unknown]
  - Urine analysis abnormal [Unknown]
  - Appetite disorder [Unknown]
  - Anxiety [Unknown]
  - Kyphoscoliosis [Unknown]
  - Sleep disorder [Unknown]
  - Nocturia [Unknown]
  - Haemoglobin decreased [Unknown]
  - Dysphagia [Unknown]
  - Arthralgia [Unknown]
  - Skin laceration [Unknown]
  - Wound [Unknown]
  - Asthenia [Unknown]
  - Amnesia [Unknown]
  - Depression [Unknown]
  - Anxiety [Unknown]
  - Fatigue [Unknown]
  - Decubitus ulcer [Unknown]
  - Pulmonary mass [Unknown]
  - Asthma [Unknown]
  - Gait disturbance [Unknown]

NARRATIVE: CASE EVENT DATE: 20210620
